FAERS Safety Report 13858025 (Version 1)
Quarter: 2017Q3

REPORT INFORMATION
  Report Type: Other
  Country: DE (occurrence: DE)
  Receive Date: 20170811
  Receipt Date: 20170811
  Transmission Date: 20171127
  Serious: Yes (Congenital Anomaly, Other)
  Sender: FDA-Public Use
  Company Number: DE-ALEMBIC PHARMACUETICALS LIMITED-2017SCAL000651

PATIENT

DRUGS (4)
  1. FEMIBION 1 [Concomitant]
     Indication: PRODUCT USED FOR UNKNOWN INDICATION
     Dosage: UNK
     Route: 064
  2. VENLAFAXINE [Suspect]
     Active Substance: VENLAFAXINE HYDROCHLORIDE
     Indication: DEPRESSION
     Dosage: INITIAL 37.5MG EVERY OTHER DAY
     Route: 064
     Dates: start: 20160527, end: 20170223
  3. VENLAFAXINE [Suspect]
     Active Substance: VENLAFAXINE HYDROCHLORIDE
     Dosage: THEN DOSAGE REDUCTION TO 37.5MG EVERY THIRD DAY
     Route: 064
  4. ERYTHROZYTEN KONZENTRAT [Concomitant]
     Indication: PRODUCT USED FOR UNKNOWN INDICATION
     Dosage: UNK
     Route: 064

REACTIONS (5)
  - Atrial septal defect [Not Recovered/Not Resolved]
  - Congenital naevus [Not Recovered/Not Resolved]
  - Prothrombin time prolonged [Recovered/Resolved]
  - Respiratory disorder neonatal [Recovered/Resolved]
  - Patent ductus arteriosus [Unknown]

NARRATIVE: CASE EVENT DATE: 20170223
